FAERS Safety Report 6640901-7 (Version None)
Quarter: 2010Q1

REPORT INFORMATION
  Report Type: 
  Country: None (occurrence: None)
  Receive Date: 20100318
  Receipt Date: 20100304
  Transmission Date: 20100710
  Serious: Yes (Hospitalization, Other)
  Sender: FDA-Public Use
  Company Number: US-ELI_LILLY_AND_COMPANY-US200911002947

PATIENT
  Sex: Female

DRUGS (5)
  1. FORTEO [Suspect]
     Indication: OSTEOPOROSIS
     Dosage: 20 UG, DAILY (1/D)
     Dates: start: 20091001, end: 20091102
  2. FORTEO [Suspect]
     Dates: start: 20091107
  3. IMITREX [Concomitant]
     Dosage: UNK, AS NEEDED
     Route: 048
  4. IMITREX [Concomitant]
     Dosage: UNK, AS NEEDED
     Route: 058
  5. LEVOTHYROXINE SODIUM [Concomitant]

REACTIONS (10)
  - ABDOMINAL PAIN [None]
  - CHANGE OF BOWEL HABIT [None]
  - COLECTOMY [None]
  - CONSTIPATION [None]
  - DIARRHOEA [None]
  - FAECAL INCONTINENCE [None]
  - HAEMORRHAGE [None]
  - INTESTINAL OBSTRUCTION [None]
  - SURGERY [None]
  - VITAMIN D DECREASED [None]
